FAERS Safety Report 22676156 (Version 3)
Quarter: 2024Q3

REPORT INFORMATION
  Report Type: Spontaneous
  Country: GR (occurrence: GR)
  Receive Date: 20230706
  Receipt Date: 20240927
  Transmission Date: 20241016
  Serious: Yes (Death, Hospitalization, Other)
  Sender: CELLTRION
  Company Number: GR-CELLTRION INC.-2023GR013361

PATIENT

DRUGS (9)
  1. RITUXIMAB [Suspect]
     Active Substance: RITUXIMAB
     Indication: B-cell lymphoma
     Dosage: TAFASITAMAB/LENALIDOMIDE/RITUXIMAB (1 CYCLE)
     Dates: start: 20221228
  2. RITUXIMAB [Suspect]
     Active Substance: RITUXIMAB
     Dosage: UNK
     Dates: start: 202202, end: 202206
  3. RITUXIMAB [Suspect]
     Active Substance: RITUXIMAB
     Dosage: UNK
     Dates: start: 202207, end: 202208
  4. SELINEXOR [Suspect]
     Active Substance: SELINEXOR
     Indication: B-cell lymphoma
     Dosage: 7TH LINE TREATMENT
     Dates: start: 20230408
  5. TAFASITAMAB [Suspect]
     Active Substance: TAFASITAMAB
     Indication: B-cell lymphoma
     Dosage: TAFASITAMAB/LENALIDOMIDE/RITUXIMAB (1 CYCLE)
     Dates: start: 20221228
  6. IMBRUVICA [Suspect]
     Active Substance: IBRUTINIB
     Indication: B-cell lymphoma
     Dosage: 1 CYCLE OF IBRUTINIB/VENETOCLAX AS 6TH LINE TREATMENT
     Route: 048
     Dates: start: 202303
  7. LENALIDOMIDE [Suspect]
     Active Substance: LENALIDOMIDE
     Indication: B-cell lymphoma
     Dosage: TAFASITAMAB/LENALIDOMIDE/RITUXIMAB (1 CYCLE)
     Dates: start: 20221228
  8. VENETOCLAX [Suspect]
     Active Substance: VENETOCLAX
     Indication: B-cell lymphoma
     Dosage: 1 CYCLE OF IBRUTINIB/VENETOCLAX AS 6TH LINE TREATMENT
     Route: 048
     Dates: start: 202303
  9. IBRUTINIB [Suspect]
     Active Substance: IBRUTINIB
     Indication: B-cell lymphoma
     Dosage: 1 CYCLE OF IBRUTINIB/VENETOCLAX AS 6TH LINE TREATMENT
     Dates: start: 202303

REACTIONS (5)
  - Diffuse large B-cell lymphoma stage IV [Fatal]
  - Disease progression [Fatal]
  - Bell^s palsy [Not Recovered/Not Resolved]
  - Off label use [Unknown]
  - Product use issue [Unknown]
